FAERS Safety Report 9774806 (Version 2)
Quarter: 2013Q4

REPORT INFORMATION
  Report Type: Report from Study
  Country: AU (occurrence: AU)
  Receive Date: 20131220
  Receipt Date: 20131220
  Transmission Date: 20140711
  Serious: Yes (Death, Hospitalization)
  Sender: FDA-Public Use
  Company Number: AU-MPIJNJ-2013-02637

PATIENT
  Sex: 0

DRUGS (16)
  1. VELCADE [Suspect]
     Indication: PLASMA CELL MYELOMA
     Dosage: 2.1 MG, UNK
     Route: 065
     Dates: start: 20120731, end: 20120927
  2. CYCLOPHOSPHAMIDE [Suspect]
     Indication: PLASMA CELL MYELOMA
     Dosage: 500 MG, UNK
     Route: 065
     Dates: start: 20120731, end: 20121001
  3. DEXAMETHASONE [Suspect]
     Indication: PLASMA CELL MYELOMA
     Dosage: UNK
     Route: 065
     Dates: start: 20120727, end: 20120729
  4. THALIDOMIDE [Suspect]
     Indication: PLASMA CELL MYELOMA
     Dosage: 100 MG, UNK
     Route: 065
     Dates: start: 20130328, end: 20130404
  5. OXYCONTIN [Concomitant]
     Indication: BONE PAIN
  6. RILUZOLE [Concomitant]
  7. FRUSEMIDE                          /00032601/ [Concomitant]
     Indication: RENAL FAILURE
  8. GLICLAZIDE [Concomitant]
     Indication: DIABETES MELLITUS
  9. PARACETAMOL [Concomitant]
     Indication: ARTHRITIS
  10. DAPSONE [Concomitant]
     Indication: PROPHYLAXIS
     Dosage: UNK
     Dates: start: 20120731, end: 20130405
  11. VALACICLOVIR [Concomitant]
     Indication: ANTIVIRAL PROPHYLAXIS
     Dosage: UNK
     Dates: start: 20120731
  12. ESOMEPRAZOLE [Concomitant]
     Indication: PROPHYLAXIS
     Dosage: UNK
     Dates: start: 20120731
  13. GRANISETRON [Concomitant]
     Indication: PROPHYLAXIS OF NAUSEA AND VOMITING
     Dosage: UNK
     Dates: start: 20120731
  14. CLEXANE [Concomitant]
     Indication: THROMBOSIS PROPHYLAXIS
     Dosage: UNK
     Dates: start: 20120815
  15. CLEXANE [Concomitant]
     Indication: LEFT VENTRICULAR DYSFUNCTION
     Dosage: UNK
     Dates: start: 20120909
  16. ALLOPURINOL [Concomitant]
     Indication: PROPHYLAXIS
     Dosage: UNK
     Dates: start: 20120731

REACTIONS (2)
  - Death [Fatal]
  - Lobar pneumonia [Recovered/Resolved]
